FAERS Safety Report 11915318 (Version 1)
Quarter: 2016Q1

REPORT INFORMATION
  Report Type: Spontaneous
  Country: FR (occurrence: FR)
  Receive Date: 20160114
  Receipt Date: 20160114
  Transmission Date: 20160526
  Serious: Yes (Hospitalization)
  Sender: FDA-Public Use
  Company Number: FR-ASTRAZENECA-2016SE01716

PATIENT
  Age: 54 Year
  Sex: Male

DRUGS (3)
  1. OLMETEC [Suspect]
     Active Substance: OLMESARTAN MEDOXOMIL
     Route: 048
     Dates: start: 2014, end: 201512
  2. CRESTOR [Suspect]
     Active Substance: ROSUVASTATIN CALCIUM
     Indication: HYPERCHOLESTEROLAEMIA
     Route: 048
     Dates: end: 201511
  3. COZAAR [Suspect]
     Active Substance: LOSARTAN POTASSIUM
     Indication: HYPERCHOLESTEROLAEMIA
     Route: 048
     Dates: start: 2013, end: 2014

REACTIONS (4)
  - Thrombocytopenia [Recovered/Resolved]
  - Polyp [Unknown]
  - Diarrhoea [Recovered/Resolved]
  - Muscle spasms [Recovered/Resolved]
